FAERS Safety Report 4358707-0 (Version None)
Quarter: 2004Q2

REPORT INFORMATION
  Report Type: 
  Country: None (occurrence: None)
  Receive Date: 20040517
  Receipt Date: 20030130
  Transmission Date: 20050107
  Serious: Yes (Other)
  Sender: FDA-Public Use
  Company Number: PHEH2003US01132

PATIENT
  Age: 62 Year
  Sex: Male

DRUGS (16)
  1. AREDIA [Suspect]
     Indication: METASTASES TO BONE
     Dosage: 90 MG, UNK
     Route: 042
     Dates: start: 20010212
  2. GEMZAR [Concomitant]
     Indication: LUNG NEOPLASM MALIGNANT
     Dosage: 2320 MG PER WEEK
     Dates: start: 20000915, end: 20010126
  3. TAXOL [Concomitant]
     Indication: LUNG NEOPLASM MALIGNANT
     Dosage: 310 MG THREE TIMES WEEKLY
     Dates: start: 19990907, end: 19991127
  4. CARBOPLATIN [Concomitant]
     Indication: LUNG NEOPLASM MALIGNANT
     Dosage: 560 MG THREE TIMES WEEKLY
     Dates: start: 19990907, end: 19991129
  5. AMIKACIN [Concomitant]
  6. ROXICET [Concomitant]
  7. OXYCONTIN [Concomitant]
  8. CELEBREX [Concomitant]
  9. VINORELBINE TARTRATE [Concomitant]
     Dosage: 60 MG WEEKLY
     Dates: start: 20010209, end: 20021230
  10. VINORELBINE TARTRATE [Concomitant]
     Dates: start: 20030519, end: 20030602
  11. GLUCOTROL [Concomitant]
     Dosage: 10 MG, UNK
  12. COMBIVENT [Concomitant]
  13. PROCHLORPERAZINE [Concomitant]
     Dosage: 10 MG, UNK
  14. VITAMIN B6 [Concomitant]
     Dosage: 200 MG, UNK
  15. DECADRON [Concomitant]
     Indication: LUNG NEOPLASM MALIGNANT
     Dosage: 10 MG THREE TIMES WEEKLY
     Dates: start: 19990907, end: 19991120
  16. DECADRON [Concomitant]
     Dosage: 10 MG WEEKLY
     Dates: start: 20000915, end: 20010126

REACTIONS (8)
  - BONE DEBRIDEMENT [None]
  - CHRONIC SINUSITIS [None]
  - FISTULA [None]
  - IMPAIRED HEALING [None]
  - ORAL SOFT TISSUE DISORDER [None]
  - OSTEONECROSIS [None]
  - SEQUESTRECTOMY [None]
  - TOOTH EXTRACTION [None]
